FAERS Safety Report 5788462-9 (Version None)
Quarter: 2008Q2

REPORT INFORMATION
  Report Type: 
  Country: None (occurrence: None)
  Receive Date: 20080623
  Receipt Date: 20080609
  Transmission Date: 20081010
  Serious: Yes (Hospitalization)
  Sender: FDA-Public Use
  Company Number: 2008AL006630

PATIENT
  Age: 66 Year
  Sex: Male
  Weight: 90.7194 kg

DRUGS (11)
  1. DIGOXIN [Suspect]
     Indication: ARRHYTHMIA
     Dosage: 0.125MG, QD, PO
     Route: 048
     Dates: start: 20010101, end: 20080613
  2. DIGITEK [Concomitant]
  3. LASIX [Concomitant]
  4. SPIRONOLACTONE [Concomitant]
  5. GLYBURIDE [Concomitant]
  6. LIPITOR [Concomitant]
  7. TOPROL-XL [Concomitant]
  8. LISINOPRIL [Concomitant]
  9. COUMADIN [Concomitant]
  10. AMIODARONE HCL [Concomitant]
  11. ASPIRIN [Concomitant]

REACTIONS (2)
  - DEVICE FAILURE [None]
  - HEART RATE INCREASED [None]
